FAERS Safety Report 7832040-4 (Version None)
Quarter: 2011Q4

REPORT INFORMATION
  Report Type: 
  Country: None (occurrence: None)
  Receive Date: 20111021
  Receipt Date: 20111014
  Transmission Date: 20120403
  Serious: Yes (Hospitalization)
  Sender: FDA-Public Use
  Company Number: US-ASTRAZENECA-2011SE53119

PATIENT
  Age: 76 Year
  Sex: Female
  Weight: 63.5 kg

DRUGS (7)
  1. ASCORBIC ACID [Concomitant]
     Indication: ROUTINE HEALTH MAINTENANCE
     Route: 048
  2. ENSURE [Concomitant]
  3. UNSPECIFIED DRUG [Suspect]
     Route: 065
  4. SYMBICORT [Suspect]
     Indication: CHRONIC OBSTRUCTIVE PULMONARY DISEASE
     Dosage: 80/4.5 MICROGRAMM, TWO TIMES A DAY
     Route: 055
     Dates: start: 20110809
  5. CALCIUM PLUS MAGNESIUM PLUS VITAMIN D3 [Concomitant]
     Indication: ROUTINE HEALTH MAINTENANCE
     Dosage: THREE TIMERS A DAY
     Route: 048
  6. ECHINACEAE [Concomitant]
     Indication: ROUTINE HEALTH MAINTENANCE
     Dosage: TWICE A DAY
     Route: 048
  7. GOLD SEAL ANTISEPTIC POWDER [Concomitant]
     Indication: ROUTINE HEALTH MAINTENANCE
     Dosage: TWICE A DAY
     Route: 048

REACTIONS (5)
  - RESPIRATORY DISORDER [None]
  - ORAL CANDIDIASIS [None]
  - CHRONIC OBSTRUCTIVE PULMONARY DISEASE [None]
  - DRUG EFFECT DECREASED [None]
  - DRUG DOSE OMISSION [None]
